FAERS Safety Report 8163149-6 (Version None)
Quarter: 2012Q1

REPORT INFORMATION
  Report Type: 
  Country: None (occurrence: None)
  Receive Date: 20120224
  Receipt Date: 20110228
  Transmission Date: 20120608
  Serious: No
  Sender: FDA-Public Use
  Company Number: US-PFIZER INC-K201100211

PATIENT
  Age: 57 Year
  Sex: Male
  Weight: 74.83 kg

DRUGS (2)
  1. FLECTOR [Suspect]
     Indication: ARTHRALGIA
     Dosage: 1 PATCH, EVERY 12 HOURS
     Route: 061
     Dates: start: 20100901, end: 20100101
  2. MULTI-VITAMINS [Concomitant]
     Dosage: UNK

REACTIONS (2)
  - APPLICATION SITE BURN [None]
  - APPLICATION SITE SCAR [None]
